FAERS Safety Report 10013944 (Version 2)
Quarter: 2014Q1

REPORT INFORMATION
  Report Type: Spontaneous
  Country: JP (occurrence: JP)
  Receive Date: 20140316
  Receipt Date: 20140318
  Transmission Date: 20141002
  Serious: Yes (Hospitalization)
  Sender: FDA-Public Use
  Company Number: JP-ROCHE-1363876

PATIENT
  Age: 34 Year
  Sex: Male

DRUGS (1)
  1. AVASTIN [Suspect]
     Indication: RETINAL VEIN OCCLUSION
     Dosage: DOSAGE IS UNCERTAIN.
     Route: 031

REACTIONS (1)
  - Vasculitis [Recovering/Resolving]
